FAERS Safety Report 15325150 (Version 2)
Quarter: 2018Q4

REPORT INFORMATION
  Report Type: Spontaneous
  Country: NL (occurrence: NL)
  Receive Date: 20180828
  Receipt Date: 20181015
  Transmission Date: 20190204
  Serious: Yes (Death, Other)
  Sender: FDA-Public Use
  Company Number: NL-TERSERA THERAPEUTICS LLC-TSR2017000725

PATIENT

DRUGS (4)
  1. ZOLADEX [Suspect]
     Active Substance: GOSERELIN ACETATE
     Dosage: 10.8 MILLIGRAM/ Q13 WEEKS
     Route: 058
     Dates: start: 20180509
  2. ZOLADEX [Suspect]
     Active Substance: GOSERELIN ACETATE
     Dosage: 10.8 MILLIGRAM/ Q13 WEEKS
     Route: 058
     Dates: start: 20180207
  3. ZOLADEX [Suspect]
     Active Substance: GOSERELIN ACETATE
     Dosage: 10.8 MILLIGRAM/ Q13 WEEKS
     Route: 058
     Dates: start: 20130814
  4. ZOLADEX [Suspect]
     Active Substance: GOSERELIN ACETATE
     Indication: PROSTATE CANCER
     Dosage: 10.8 MILLIGRAM/ Q13 WEEKS
     Route: 058
     Dates: start: 20120509

REACTIONS (10)
  - Arthralgia [Unknown]
  - Off label use [Unknown]
  - Muscular weakness [Unknown]
  - Abdominal lymphadenopathy [Unknown]
  - Hepatic enzyme abnormal [Unknown]
  - Condition aggravated [Unknown]
  - Hot flush [Unknown]
  - Malignant neoplasm progression [Unknown]
  - Metastases to bone [Unknown]
  - Death [Fatal]

NARRATIVE: CASE EVENT DATE: 201508
